FAERS Safety Report 9791768 (Version 2)
Quarter: 2014Q1

REPORT INFORMATION
  Report Type: Spontaneous
  Country: US (occurrence: US)
  Receive Date: 20140102
  Receipt Date: 20140214
  Transmission Date: 20141002
  Serious: No
  Sender: FDA-Public Use
  Company Number: US-JNJFOC-20131215329

PATIENT
  Sex: Male

DRUGS (3)
  1. INVEGA SUSTENNA [Suspect]
     Indication: SCHIZOPHRENIA
     Route: 030
  2. DEPAKOTE ER [Concomitant]
     Route: 048
  3. CELEXA [Concomitant]
     Route: 048

REACTIONS (1)
  - Semen volume decreased [Not Recovered/Not Resolved]
